FAERS Safety Report 12866782 (Version 5)
Quarter: 2017Q1

REPORT INFORMATION
  Report Type: Report from Study
  Country: None (occurrence: DE)
  Receive Date: 20161020
  Receipt Date: 20170313
  Transmission Date: 20170428
  Serious: Yes (Hospitalization, Other)
  Sender: FDA-Public Use
  Company Number: DE-ABBVIE-16P-062-1756821-00

PATIENT
  Age: 76 Year
  Sex: Male
  Weight: 70 kg

DRUGS (31)
  1. DUODOPA [Suspect]
     Active Substance: CARBIDOPA\LEVODOPA
     Indication: PARKINSON^S DISEASE
     Route: 050
     Dates: start: 201606
  2. LYRICA [Concomitant]
     Active Substance: PREGABALIN
     Indication: PAIN
     Route: 048
     Dates: start: 20151129
  3. RAMIPRIL. [Concomitant]
     Active Substance: RAMIPRIL
     Indication: HYPERTENSION
     Route: 048
     Dates: start: 20161024
  4. SEROQUEL [Concomitant]
     Active Substance: QUETIAPINE FUMARATE
     Indication: PARKINSON^S DISEASE
     Route: 048
     Dates: start: 20161012, end: 20161016
  5. SEROQUEL [Concomitant]
     Active Substance: QUETIAPINE FUMARATE
     Indication: DEPRESSION
     Route: 048
     Dates: start: 20161021
  6. DUODOPA [Suspect]
     Active Substance: CARBIDOPA\LEVODOPA
     Route: 050
     Dates: start: 20161025
  7. RIVASTIGMIN [Concomitant]
     Active Substance: RIVASTIGMINE
     Indication: DEMENTIA
     Route: 048
     Dates: start: 20160901
  8. VITAMIN B12 [Concomitant]
     Active Substance: CYANOCOBALAMIN
     Indication: VITAMIN B12 DEFICIENCY
     Route: 048
  9. MOVICOL [Concomitant]
     Active Substance: POLYETHYLENE GLYCOL 3350\POTASSIUM CHLORIDE\SODIUM BICARBONATE\SODIUM CHLORIDE
     Indication: PRODUCT USED FOR UNKNOWN INDICATION
     Dates: start: 20161014
  10. LEVETIRACETAM. [Concomitant]
     Active Substance: LEVETIRACETAM
     Route: 048
     Dates: start: 20161017
  11. LEVODOPA [Concomitant]
     Active Substance: LEVODOPA
     Indication: PRODUCT USED FOR UNKNOWN INDICATION
  12. QUETIAPINE. [Concomitant]
     Active Substance: QUETIAPINE
     Indication: PARKINSON^S DISEASE
     Route: 048
     Dates: start: 20160901
  13. RIVASTIGMIN [Concomitant]
     Active Substance: RIVASTIGMINE
     Dates: start: 201612
  14. RESOLOR [Concomitant]
     Active Substance: PRUCALOPRIDE SUCCINATE
     Indication: CONSTIPATION
     Route: 048
  15. FOLIC ACID. [Concomitant]
     Active Substance: FOLIC ACID
     Indication: FOLATE DEFICIENCY
     Route: 048
     Dates: start: 20150301
  16. TASMAR [Concomitant]
     Active Substance: TOLCAPONE
     Indication: PARKINSON^S DISEASE
     Route: 048
     Dates: start: 20161028
  17. DUODOPA [Suspect]
     Active Substance: CARBIDOPA\LEVODOPA
     Dosage: 5.0 ML, FREQUENCY 24
     Route: 050
     Dates: start: 20160818, end: 20160828
  18. DUODOPA [Suspect]
     Active Substance: CARBIDOPA\LEVODOPA
     Route: 050
     Dates: start: 20161025
  19. LEVETIRACETAM. [Concomitant]
     Active Substance: LEVETIRACETAM
     Indication: EPILEPSY
     Route: 048
     Dates: start: 20160901
  20. RIVASTIGMIN [Concomitant]
     Active Substance: RIVASTIGMINE
     Route: 062
     Dates: end: 201612
  21. NEUPRO [Concomitant]
     Active Substance: ROTIGOTINE
     Indication: PARKINSON^S DISEASE
     Route: 062
  22. MORPHIN [Concomitant]
     Active Substance: MORPHINE
     Indication: PRODUCT USED FOR UNKNOWN INDICATION
     Route: 048
  23. MACROGOL [Concomitant]
     Active Substance: POLYETHYLENE GLYCOLS
     Indication: CONSTIPATION
     Dosage: 13.125 UNKNOWN
     Route: 048
  24. SERTRALINE [Concomitant]
     Active Substance: SERTRALINE HYDROCHLORIDE
     Indication: PRODUCT USED FOR UNKNOWN INDICATION
     Route: 048
     Dates: start: 201612
  25. SEROQUEL [Concomitant]
     Active Substance: QUETIAPINE FUMARATE
     Indication: HALLUCINATION
  26. ROTIGOTIN [Concomitant]
     Indication: PARKINSON^S DISEASE
     Dates: start: 20160901
  27. METOPROLOL. [Concomitant]
     Active Substance: METOPROLOL
     Indication: HYPERTENSION
     Route: 048
     Dates: start: 20161014
  28. NOVAMIN [Concomitant]
     Active Substance: PROCHLORPERAZINE MALEATE
     Indication: PAIN
     Route: 048
     Dates: start: 20161119
  29. DUODOPA [Suspect]
     Active Substance: CARBIDOPA\LEVODOPA
     Dosage: 4.9 ML, FREQUENCY 24
     Route: 050
     Dates: start: 20160829, end: 20160831
  30. DUODOPA [Suspect]
     Active Substance: CARBIDOPA\LEVODOPA
     Route: 050
     Dates: end: 20161129
  31. ASPIRIN. [Concomitant]
     Active Substance: ASPIRIN
     Indication: THROMBOSIS PROPHYLAXIS
     Route: 048
     Dates: start: 20120101

REACTIONS (45)
  - Epilepsy [Recovered/Resolved]
  - Fall [Recovered/Resolved]
  - Bradykinesia [Unknown]
  - Tremor [Unknown]
  - General physical health deterioration [Unknown]
  - Cachexia [Unknown]
  - Epilepsy [Recovered/Resolved]
  - Confusional state [Recovered/Resolved]
  - Computerised tomogram head abnormal [Unknown]
  - Epilepsy [Unknown]
  - Pneumonia aspiration [Recovered/Resolved]
  - Psychotic disorder [Unknown]
  - Apathy [Unknown]
  - Dementia [Unknown]
  - Pneumonia [Recovered/Resolved]
  - Fall [Unknown]
  - Gastroenteritis clostridial [Recovered/Resolved]
  - Electrocardiogram low voltage [Unknown]
  - Pneumonia [Recovered/Resolved]
  - Gastroenteritis norovirus [Recovered/Resolved]
  - Constipation [Unknown]
  - Gastric mucosa erythema [Unknown]
  - Infection [Unknown]
  - Epilepsy [Recovered/Resolved]
  - Dysphagia [Unknown]
  - Drug effect variable [Recovered/Resolved]
  - Drug ineffective [Unknown]
  - Dystonia [Unknown]
  - Dysarthria [Unknown]
  - Camptocormia [Unknown]
  - Depression [Unknown]
  - Haematuria [Recovered/Resolved]
  - Urinary tract infection [Recovered/Resolved]
  - Dopamine dysregulation syndrome [Unknown]
  - Microangiopathy [Unknown]
  - Cubital tunnel syndrome [Unknown]
  - Gastric mucosa erythema [Unknown]
  - Encephalopathy [Unknown]
  - Vitamin B12 deficiency [Unknown]
  - Pain [Unknown]
  - Confusional state [Recovered/Resolved]
  - Urge incontinence [Unknown]
  - Pleurothotonus [Unknown]
  - Pneumonia [Unknown]
  - Gastroenteritis norovirus [Recovered/Resolved]

NARRATIVE: CASE EVENT DATE: 20160819
